FAERS Safety Report 10087015 (Version 3)
Quarter: 2014Q3

REPORT INFORMATION
  Report Type: Spontaneous
  Country: US (occurrence: US)
  Receive Date: 20140418
  Receipt Date: 20140730
  Transmission Date: 20150326
  Serious: Yes (Hospitalization, Other)
  Sender: FDA-Public Use
  Company Number: US-GILEAD-2014-0099956

PATIENT
  Sex: Female

DRUGS (3)
  1. OXYGEN. [Concomitant]
     Active Substance: OXYGEN
  2. LETAIRIS [Suspect]
     Active Substance: AMBRISENTAN
     Indication: PULMONARY HYPERTENSION
     Dosage: 10 MG, QD
     Route: 065
     Dates: start: 20120412
  3. LETAIRIS [Suspect]
     Active Substance: AMBRISENTAN
     Indication: RENAL FAILURE

REACTIONS (9)
  - Cough [Unknown]
  - Decreased appetite [Recovering/Resolving]
  - Weight decreased [Unknown]
  - Dyspnoea exertional [Unknown]
  - Chest pain [Unknown]
  - Heart valve operation [Unknown]
  - Fatigue [Unknown]
  - Dyspnoea [Unknown]
  - Dialysis [Unknown]
